FAERS Safety Report 9205955 (Version 1)
Quarter: 2013Q1

REPORT INFORMATION
  Report Type: Spontaneous
  Country: US (occurrence: None)
  Receive Date: 20120709
  Receipt Date: 20120709
  Transmission Date: 20140127
  Serious: Yes (Hospitalization)
  Sender: FDA-Public Use
  Company Number: PHHY2011US42900

PATIENT
  Age: 84 Year
  Sex: Female

DRUGS (2)
  1. GLEEVEC (IMATINIB) UNKNOWN [Suspect]
     Indication: CHRONIC MYELOID LEUKAEMIA
     Route: 048
  2. GLEEVEC (IMATINIB) UNKNOWN [Suspect]
     Indication: EOSINOPHILIA
     Route: 048

REACTIONS (2)
  - Pneumonia [None]
  - Cough [None]
